FAERS Safety Report 4407091-2 (Version None)
Quarter: 2004Q3

REPORT INFORMATION
  Report Type: 
  Country: None (occurrence: None)
  Receive Date: 20040721
  Receipt Date: 20040707
  Transmission Date: 20050211
  Serious: Yes (Other)
  Sender: FDA-Public Use
  Company Number: USA020413949

PATIENT
  Age: 76 Year
  Sex: Female
  Weight: 68 kg

DRUGS (9)
  1. EVISTA [Suspect]
     Indication: OSTEOPOROSIS PROPHYLAXIS
     Dosage: 60 MG/1 DAY
     Dates: start: 20020321, end: 20040420
  2. PROZAC [Suspect]
     Indication: DEPRESSION
     Dosage: 10 MG/1 DAY
     Dates: start: 19990101, end: 20020101
  3. FORTEO [Suspect]
     Indication: OSTEOPOROSIS
     Dates: start: 20040101, end: 20040416
  4. SYNTHROID [Concomitant]
  5. KETOPROFEN    BAYER      (KETOPROFEN) [Concomitant]
  6. FLUOXETINE [Concomitant]
  7. NEURONTIN [Concomitant]
  8. MULTI-VITAMIN [Concomitant]
  9. PAIN KILLER [Concomitant]

REACTIONS (8)
  - ARTHRALGIA [None]
  - CHEST WALL PAIN [None]
  - CONDITION AGGRAVATED [None]
  - LOWER LIMB FRACTURE [None]
  - OSTEOPOROSIS [None]
  - PELVIC FRACTURE [None]
  - ROAD TRAFFIC ACCIDENT [None]
  - TRIGGER FINGER [None]
